FAERS Safety Report 22140102 (Version 1)
Quarter: 2023Q1

REPORT INFORMATION
  Report Type: Report from Study
  Country: MY (occurrence: MY)
  Receive Date: 20230327
  Receipt Date: 20230327
  Transmission Date: 20230417
  Serious: Yes (Life-Threatening, Hospitalization)
  Sender: FDA-Public Use
  Company Number: MY-002147023-NVSC2023MY067816

PATIENT
  Age: 61 Year
  Sex: Female
  Weight: 64.5 kg

DRUGS (7)
  1. MEKINIST [Suspect]
     Active Substance: TRAMETINIB DIMETHYL SULFOXIDE
     Indication: Lung adenocarcinoma stage IV
     Dosage: 2 MG, QD
     Route: 048
     Dates: start: 20221101, end: 20221211
  2. MEKINIST [Suspect]
     Active Substance: TRAMETINIB DIMETHYL SULFOXIDE
     Indication: Neoplasm malignant
  3. DABRAFENIB [Suspect]
     Active Substance: DABRAFENIB
     Indication: Lung adenocarcinoma stage IV
     Dosage: 150 MG, BID
     Route: 048
     Dates: start: 20221101, end: 20221211
  4. DABRAFENIB [Suspect]
     Active Substance: DABRAFENIB
     Indication: Neoplasm malignant
     Dosage: 75 MG, BID
     Route: 065
     Dates: start: 20221223
  5. MEROPENEM [Concomitant]
     Active Substance: MEROPENEM
     Indication: Product used for unknown indication
     Dosage: UNK
     Route: 065
  6. LINEZOLID [Concomitant]
     Active Substance: LINEZOLID
     Indication: Product used for unknown indication
     Dosage: UNK
     Route: 065
  7. DOXYCYCLINE [Concomitant]
     Active Substance: DOXYCYCLINE
     Indication: Product used for unknown indication
     Dosage: UNK
     Route: 065

REACTIONS (3)
  - Sepsis [Recovered/Resolved]
  - Pyrexia [Unknown]
  - Hypotension [Unknown]

NARRATIVE: CASE EVENT DATE: 20221211
